FAERS Safety Report 9193884 (Version 1)
Quarter: 2013Q1

REPORT INFORMATION
  Report Type: Spontaneous
  Country: FR (occurrence: FR)
  Receive Date: 20130327
  Receipt Date: 20130327
  Transmission Date: 20140127
  Serious: Yes (Hospitalization)
  Sender: FDA-Public Use
  Company Number: FR-PFIZER INC-2013092573

PATIENT
  Age: 64 Year
  Sex: Male

DRUGS (11)
  1. REVATIO [Suspect]
     Dosage: 20 MG, UNK
     Route: 048
  2. SIMVASTATIN [Suspect]
     Dosage: UNK
  3. TRACLEER [Suspect]
     Dosage: 125 MG, UNK
     Route: 048
  4. PLAVIX [Suspect]
     Dosage: 75 MG, UNK
  5. LASILIX [Concomitant]
  6. SPIRONOLACTONE [Concomitant]
  7. DIFFU K [Concomitant]
  8. XYZAL [Concomitant]
  9. NOVONORM [Concomitant]
  10. VENTAVIS [Concomitant]
  11. INSULIN [Concomitant]

REACTIONS (3)
  - Microcytic anaemia [Unknown]
  - Cardiac failure [Unknown]
  - Oedema peripheral [Unknown]
